FAERS Safety Report 19737051 (Version 1)
Quarter: 2021Q3

REPORT INFORMATION
  Report Type: Spontaneous
  Country: US (occurrence: US)
  Receive Date: 20210820
  Receipt Date: 20210820
  Transmission Date: 20211014
  Serious: No
  Sender: FDA-Public Use
  Company Number: None

PATIENT
  Age: 46 Year
  Sex: Male

DRUGS (1)
  1. VIGABATRIN 500MG ACTAVIS PHARMA [Suspect]
     Active Substance: VIGABATRIN
     Indication: LENNOX-GASTAUT SYNDROME
     Dosage: ?          OTHER DOSE:SEE EVENT;OTHER FREQUENCY:SEE EVENT;?
     Route: 048
     Dates: start: 20210128

REACTIONS (6)
  - Irritability [None]
  - Delusion [None]
  - Muscular weakness [None]
  - Seizure [None]
  - Speech disorder [None]
  - Mental impairment [None]

NARRATIVE: CASE EVENT DATE: 20210326
